FAERS Safety Report 5035588-3 (Version None)
Quarter: 2006Q2

REPORT INFORMATION
  Report Type: 
  Country: None (occurrence: None)
  Receive Date: 20060622
  Receipt Date: 20060608
  Transmission Date: 20061013
  Serious: Yes (Hospitalization)
  Sender: FDA-Public Use
  Company Number: 2006JP001724

PATIENT
  Age: 34 Year
  Sex: Male

DRUGS (6)
  1. PROGRAF [Suspect]
     Indication: RENAL TRANSPLANT
     Dosage: 4 MG, ORAL
     Route: 048
     Dates: start: 20060201
  2. CELLCEPT [Suspect]
     Dosage: 1000 MG, ORAL
     Route: 048
  3. MEDROL ACETATE [Concomitant]
  4. PLETAL [Concomitant]
  5. SULFAMETHOXAZOLE + TRIMETHOPRIM [Concomitant]
  6. DIOVAN [Concomitant]

REACTIONS (1)
  - GINGIVAL PAIN [None]
